FAERS Safety Report 17999926 (Version 2)
Quarter: 2020Q3

REPORT INFORMATION
  Report Type: Spontaneous
  Country: US (occurrence: US)
  Receive Date: 20200709
  Receipt Date: 20200825
  Transmission Date: 20201103
  Serious: No
  Sender: FDA-Public Use
  Company Number: US-PFIZER INC-2020261518

PATIENT
  Age: 4 Year
  Sex: Male

DRUGS (2)
  1. EUCRISA [Suspect]
     Active Substance: CRISABOROLE
     Indication: DERMATITIS ATOPIC
     Dosage: UNK, 2X/DAY (APPLY TO AFFECTED AREAS TWICE DAILY.FOLLOW WITH MOISTURIZER)
     Route: 061
  2. EUCRISA [Suspect]
     Active Substance: CRISABOROLE
     Indication: RASH
     Dosage: 2X/DAY (ENTIRE BODY TWICE DAILY. FOLLOW CERAVE LOTION)
     Route: 061

REACTIONS (1)
  - Therapeutic product effect incomplete [Unknown]
